FAERS Safety Report 4717429-4 (Version None)
Quarter: 2005Q3

REPORT INFORMATION
  Report Type: 
  Country: None (occurrence: None)
  Receive Date: 20050719
  Receipt Date: 20050621
  Transmission Date: 20060218
  Serious: No
  Sender: FDA-Public Use
  Company Number: JP-MERCK-0506USA03429

PATIENT
  Age: 76 Year
  Sex: Female
  Weight: 56 kg

DRUGS (6)
  1. COZAAR [Suspect]
     Indication: HYPERTENSION
     Route: 048
     Dates: start: 20050511, end: 20050615
  2. COZAAR [Suspect]
     Route: 048
     Dates: start: 20050404, end: 20050510
  3. GLUFAST [Suspect]
     Indication: DIABETES MELLITUS
     Route: 048
     Dates: start: 20050421, end: 20050618
  4. LIPOVAS [Suspect]
     Indication: HYPERLIPIDAEMIA
     Route: 048
     Dates: start: 20050325, end: 20050617
  5. NORVASC [Concomitant]
     Indication: HYPERTENSION
     Route: 048
     Dates: start: 20050325
  6. URSODIOL [Concomitant]
     Indication: CHRONIC HEPATITIS
     Route: 048
     Dates: start: 20050325

REACTIONS (2)
  - ANAEMIA [None]
  - LEUKOPENIA [None]
